FAERS Safety Report 24565094 (Version 1)
Quarter: 2024Q4

REPORT INFORMATION
  Report Type: Spontaneous
  Country: FR (occurrence: FR)
  Receive Date: 20241030
  Receipt Date: 20241030
  Transmission Date: 20250115
  Serious: Yes (Other)
  Sender: ACCORD
  Company Number: FR-Accord-452769

PATIENT
  Age: 74 Year
  Sex: Female

DRUGS (2)
  1. AMPHETAMINE [Suspect]
     Active Substance: AMPHETAMINE
     Indication: Narcolepsy
     Dosage: (UP TO 150 MG/24 HOURS)
  2. MODAFINIL [Suspect]
     Active Substance: MODAFINIL
     Indication: Narcolepsy
     Dosage: 3 YEARS

REACTIONS (2)
  - Drug abuse [Unknown]
  - Dementia with Lewy bodies [Recovering/Resolving]
